FAERS Safety Report 4708616-X (Version None)
Quarter: 2005Q3

REPORT INFORMATION
  Report Type: 
  Country: None (occurrence: None)
  Receive Date: 20050707
  Receipt Date: 20041228
  Transmission Date: 20060218
  Serious: Yes (Other)
  Sender: FDA-Public Use
  Company Number: 200510105JP

PATIENT
  Age: 63 Year
  Sex: Male
  Weight: 63 kg

DRUGS (11)
  1. TAXOTERE [Suspect]
     Indication: NASAL SINUS CANCER
     Route: 041
     Dates: start: 20040119, end: 20040119
  2. FLUOROURACIL [Concomitant]
     Indication: NASAL SINUS CANCER
     Route: 042
     Dates: start: 20040119, end: 20040123
  3. CISPLATIN [Concomitant]
     Indication: NASAL SINUS CANCER
     Route: 042
     Dates: start: 20040119, end: 20040119
  4. SOLU-MEDROL [Concomitant]
     Indication: CHEMOTHERAPY
     Route: 042
     Dates: start: 20040119, end: 20040119
  5. PRIMPERAN INJ [Concomitant]
     Indication: CHEMOTHERAPY
     Dosage: DOSE: 4 AMPULES/DAY
     Route: 042
     Dates: start: 20040119, end: 20040123
  6. GASTER [Concomitant]
     Indication: CHEMOTHERAPY
     Dosage: DOSE: 2 AMPULES/DAY
     Route: 042
     Dates: start: 20040119, end: 20040123
  7. SEROTONE [Concomitant]
     Indication: CHEMOTHERAPY
     Dosage: DOSE: 2 AMPULES/DAY
     Route: 042
     Dates: start: 20040119, end: 20040123
  8. ELASZYM [Concomitant]
     Indication: HYPERLIPIDAEMIA
     Dosage: DOSE: 2 TABLETS/DAY
     Route: 048
     Dates: start: 20030101, end: 20040210
  9. ADALAT [Concomitant]
     Indication: HYPERTENSION
     Route: 048
     Dates: start: 20030101, end: 20040210
  10. MAGLAX [Concomitant]
     Indication: ANAESTHETIC COMPLICATION
     Route: 048
     Dates: start: 20040107, end: 20040210
  11. MS CONTIN [Concomitant]
     Indication: CANCER PAIN
     Route: 048
     Dates: start: 20040107, end: 20040211

REACTIONS (4)
  - DIARRHOEA [None]
  - INTESTINAL ISCHAEMIA [None]
  - LARGE INTESTINAL ULCER [None]
  - MELAENA [None]
